FAERS Safety Report 6924057-9 (Version None)
Quarter: 2010Q3

REPORT INFORMATION
  Report Type: 
  Country: None (occurrence: None)
  Receive Date: 20100813
  Receipt Date: 20100805
  Transmission Date: 20110219
  Serious: Yes (Hospitalization, Other)
  Sender: FDA-Public Use
  Company Number: US-AMGEN-QUU428141

PATIENT
  Sex: Female
  Weight: 95.5 kg

DRUGS (1)
  1. NEULASTA [Suspect]
     Indication: PRODUCT USED FOR UNKNOWN INDICATION
     Route: 058
     Dates: start: 20100721, end: 20100721

REACTIONS (3)
  - FEBRILE NEUTROPENIA [None]
  - SALMONELLA TEST POSITIVE [None]
  - STREPTOCOCCAL BACTERAEMIA [None]
